FAERS Safety Report 18695470 (Version 1)
Quarter: 2021Q1

REPORT INFORMATION
  Report Type: Spontaneous
  Country: CN (occurrence: CN)
  Receive Date: 20210104
  Receipt Date: 20210104
  Transmission Date: 20210419
  Serious: Yes (Other)
  Sender: FDA-Public Use
  Company Number: CN-PFIZER INC-2020513221

PATIENT
  Age: 80 Year
  Sex: Male
  Weight: 50 kg

DRUGS (3)
  1. VFEND [Suspect]
     Active Substance: VORICONAZOLE
     Dosage: 0.150 G, 2X/DAY
     Route: 041
     Dates: start: 20201211, end: 20201213
  2. VFEND [Suspect]
     Active Substance: VORICONAZOLE
     Indication: THERAPEUTIC PROCEDURE
     Dosage: 0.200 G, 2X/DAY
     Route: 041
     Dates: start: 20201210, end: 20201211
  3. VFEND [Suspect]
     Active Substance: VORICONAZOLE
     Dosage: 0.100 G, 2X/DAY
     Route: 041
     Dates: start: 20201214, end: 20201216

REACTIONS (3)
  - Disorganised speech [Recovered/Resolved]
  - Delirium [Recovered/Resolved]
  - Sleep talking [Recovered/Resolved]

NARRATIVE: CASE EVENT DATE: 20201211
